FAERS Safety Report 4779136-1 (Version None)
Quarter: 2005Q3

REPORT INFORMATION
  Report Type: 
  Country: None (occurrence: None)
  Receive Date: 20050923
  Receipt Date: 20050913
  Transmission Date: 20060218
  Serious: No
  Sender: FDA-Public Use
  Company Number: 217712

PATIENT
  Age: 30 Year
  Sex: Female
  Weight: 55.8 kg

DRUGS (2)
  1. RAPTIVA [Suspect]
     Indication: PSORIASIS
     Dosage: 60 MG, 1/WEEK, SUCUTANEOUS
     Route: 058
     Dates: start: 20040106, end: 20050602
  2. RAPTIVA [Suspect]
     Indication: PSORIASIS
     Dosage: 60 MG, 1/WEEK, SUCUTANEOUS
     Route: 058
     Dates: start: 20050901

REACTIONS (2)
  - GINGIVAL BLEEDING [None]
  - PERIODONTITIS [None]
